FAERS Safety Report 24657357 (Version 1)
Quarter: 2024Q4

REPORT INFORMATION
  Report Type: Spontaneous
  Country: US (occurrence: US)
  Receive Date: 20241125
  Receipt Date: 20241125
  Transmission Date: 20250115
  Serious: Yes (Hospitalization, Other)
  Sender: CIPLA
  Company Number: US-CIPLA LTD.-2024US13166

PATIENT

DRUGS (3)
  1. BUPROPION [Suspect]
     Active Substance: BUPROPION
     Indication: Product used for unknown indication
     Dosage: UNK, TABLET
  2. NALOXONE [Concomitant]
     Active Substance: NALOXONE
     Indication: Pneumonia aspiration
     Dosage: UNK
  3. PIPERACILLIN SODIUM\TAZOBACTAM SODIUM [Concomitant]
     Active Substance: PIPERACILLIN SODIUM\TAZOBACTAM SODIUM
     Indication: Pneumonia aspiration
     Dosage: UNK
     Route: 065

REACTIONS (2)
  - Pulmonary alveolar haemorrhage [Recovered/Resolved]
  - Intentional product use issue [Unknown]
